FAERS Safety Report 5372526-8 (Version None)
Quarter: 2007Q2

REPORT INFORMATION
  Report Type: 
  Country: None (occurrence: None)
  Receive Date: 20070627
  Receipt Date: 20070620
  Transmission Date: 20071010
  Serious: Yes (Hospitalization)
  Sender: FDA-Public Use
  Company Number: FR-ABBOTT-07P-056-0372165-00

PATIENT
  Age: 75 Year
  Sex: Female
  Weight: 62 kg

DRUGS (3)
  1. TARKA [Suspect]
     Indication: DRUG USE FOR UNKNOWN INDICATION
     Route: 048
  2. ACETAMINOPHEN [Suspect]
     Indication: NECK PAIN
     Route: 048
  3. INDAPAMIDE [Concomitant]
     Indication: ESSENTIAL HYPERTENSION
     Route: 048
     Dates: end: 20070519

REACTIONS (9)
  - ASTHENIA [None]
  - CYSTITIS ESCHERICHIA [None]
  - DIARRHOEA [None]
  - DISORIENTATION [None]
  - FALL [None]
  - HYPERSENSITIVITY [None]
  - HYPONATRAEMIA [None]
  - SOMNOLENCE [None]
  - VOMITING [None]
